FAERS Safety Report 7990766-6 (Version None)
Quarter: 2011Q4

REPORT INFORMATION
  Report Type: 
  Country: None (occurrence: None)
  Receive Date: 20111219
  Receipt Date: 20111219
  Transmission Date: 20120403
  Serious: Yes (Hospitalization)
  Sender: FDA-Public Use
  Company Number: None

PATIENT
  Age: 25 Year
  Sex: Female
  Weight: 72.574 kg

DRUGS (1)
  1. COLCRYS [Suspect]
     Indication: FAMILIAL MEDITERRANEAN FEVER
     Dosage: .6 MG/.9 MG
     Route: 048
     Dates: start: 20110115, end: 20110401

REACTIONS (4)
  - DEHYDRATION [None]
  - VOMITING [None]
  - ANAEMIA [None]
  - PYREXIA [None]
